FAERS Safety Report 8299557-2 (Version None)
Quarter: 2012Q2

REPORT INFORMATION
  Report Type: 
  Country: None (occurrence: None)
  Receive Date: 20120419
  Receipt Date: 20120412
  Transmission Date: 20120825
  Serious: Yes (Death, Hospitalization)
  Sender: FDA-Public Use
  Company Number: US-GLAXOSMITHKLINE-A0789372A

PATIENT
  Age: 68 Year
  Sex: Male
  Weight: 88.6 kg

DRUGS (6)
  1. PRAVACHOL [Concomitant]
  2. AVANDIA [Suspect]
     Indication: DIABETES MELLITUS
     Dosage: 8MG PER DAY
     Route: 048
     Dates: start: 20000802, end: 20050505
  3. GLUCOTROL [Concomitant]
  4. ACCUPRIL [Concomitant]
  5. HYZAAR [Concomitant]
  6. NEXIUM [Concomitant]

REACTIONS (9)
  - MULTIPLE INJURIES [None]
  - CORONARY ARTERY STENOSIS [None]
  - DEATH [None]
  - MYOCARDIAL INFARCTION [None]
  - BUNDLE BRANCH BLOCK RIGHT [None]
  - BUNDLE BRANCH BLOCK LEFT [None]
  - CORONARY ARTERY DISEASE [None]
  - MITRAL VALVE INCOMPETENCE [None]
  - BRADYCARDIA [None]
